FAERS Safety Report 7113917-4 (Version None)
Quarter: 2010Q4

REPORT INFORMATION
  Report Type: 
  Country: None (occurrence: None)
  Receive Date: 20101119
  Receipt Date: 20101112
  Transmission Date: 20110411
  Serious: Yes (Other)
  Sender: FDA-Public Use
  Company Number: JP-PFIZER INC-2010116997

PATIENT
  Age: 29 Year
  Sex: Female

DRUGS (7)
  1. ZITHROMAX [Suspect]
     Indication: BRONCHITIS
     Dosage: 500 MG, 1X/DAY
     Route: 048
     Dates: start: 20100914, end: 20100915
  2. ZITHROMAX [Suspect]
  3. ZITHROMAX [Suspect]
     Indication: PHARYNGITIS
  4. RESPLEN [Concomitant]
     Dosage: 1 DF, 3X/DAY
     Route: 048
     Dates: start: 20100914, end: 20100920
  5. BAKUMONDOUTO [Concomitant]
     Dosage: 9 G, 3X/DAY
     Route: 048
     Dates: start: 20100914, end: 20100920
  6. SHOUSAIKOTOUKAKIKYOUSEKKOU [Concomitant]
     Dosage: 6 G, 3X/DAY
     Route: 048
     Dates: start: 20100914, end: 20100916
  7. DEQUALINIUM CHLORIDE [Concomitant]
     Dosage: 1 DF, 3X/DAY
     Route: 048
     Dates: start: 20100914, end: 20100920

REACTIONS (2)
  - DEAFNESS [None]
  - VISUAL IMPAIRMENT [None]
